FAERS Safety Report 17006373 (Version 1)
Quarter: 2019Q4

REPORT INFORMATION
  Report Type: Spontaneous
  Country: CN (occurrence: CN)
  Receive Date: 20191107
  Receipt Date: 20191107
  Transmission Date: 20200122
  Serious: Yes (Disabling, Other)
  Sender: FDA-Public Use
  Company Number: CN-NOVOPROD-694218

PATIENT
  Age: 57 Year
  Sex: Male

DRUGS (1)
  1. NOVOMIX 50 PENFILL [Suspect]
     Active Substance: INSULIN ASPART
     Indication: TYPE 2 DIABETES MELLITUS
     Dosage: 20 IU, BID
     Route: 058
     Dates: start: 20191009, end: 20191017

REACTIONS (1)
  - Fat redistribution [Unknown]

NARRATIVE: CASE EVENT DATE: 20191017
